FAERS Safety Report 20739552 (Version 9)
Quarter: 2023Q2

REPORT INFORMATION
  Report Type: Report from Study
  Country: LB (occurrence: LB)
  Receive Date: 20220422
  Receipt Date: 20230626
  Transmission Date: 20230721
  Serious: Yes (Hospitalization, Other)
  Sender: FDA-Public Use
  Company Number: LB-NOVARTISPH-NVSC2022LB091363

PATIENT
  Age: 38 Year
  Sex: Female
  Weight: 57 kg

DRUGS (27)
  1. HYRIMOZ [Suspect]
     Active Substance: ADALIMUMAB-ADAZ
     Indication: Crohn^s disease
     Dosage: 80 MG
     Route: 058
     Dates: start: 20201206
  2. HYRIMOZ [Suspect]
     Active Substance: ADALIMUMAB-ADAZ
     Dosage: 40 MG, Q2W
     Route: 058
     Dates: start: 20201227, end: 202204
  3. HYRIMOZ [Suspect]
     Active Substance: ADALIMUMAB-ADAZ
     Dosage: 40 MG, Q2W
     Route: 058
     Dates: start: 202212, end: 202212
  4. MEBEVERINE [Concomitant]
     Active Substance: MEBEVERINE
     Indication: Crohn^s disease
     Dosage: 20 MG
     Route: 048
     Dates: start: 202102
  5. EXONAR [Concomitant]
     Indication: Crohn^s disease
     Dosage: 40 MG
     Route: 048
     Dates: start: 202102
  6. CIPRALEX [Concomitant]
     Active Substance: ESCITALOPRAM OXALATE
     Indication: Anxiety
     Dosage: 10 MG
     Route: 048
     Dates: start: 202102
  7. LIBRAX [Concomitant]
     Active Substance: CHLORDIAZEPOXIDE HYDROCHLORIDE\CLIDINIUM BROMIDE
     Indication: Crohn^s disease
     Dosage: 2.5 MG
     Route: 048
     Dates: start: 202102
  8. FLUPENTIXOL DIHYDROCHLORIDE\MELITRACEN HYDROCHLORIDE [Concomitant]
     Active Substance: FLUPENTIXOL DIHYDROCHLORIDE\MELITRACEN HYDROCHLORIDE
     Indication: Depression
     Dosage: UNK
     Route: 048
     Dates: start: 202102
  9. ASPIRIN [Concomitant]
     Active Substance: ASPIRIN
     Indication: Ischaemic heart disease prophylaxis
     Dosage: 100 MG
     Route: 048
     Dates: start: 202102
  10. SURMONTIL [Concomitant]
     Active Substance: TRIMIPRAMINE MALEATE
     Indication: Depression
     Dosage: UNK
     Route: 048
     Dates: start: 202102
  11. METHAZINE [Concomitant]
     Indication: Hypersensitivity
     Dosage: UNK
     Route: 048
     Dates: start: 202102
  12. ASPIRIN [Concomitant]
     Active Substance: ASPIRIN
     Indication: Product used for unknown indication
     Dosage: UNK
     Route: 065
  13. SIDERAL [Concomitant]
     Indication: Iron deficiency
     Dosage: 1 DOSAGE FORM, QD
     Route: 048
  14. SIDERAL [Concomitant]
     Indication: Haemoglobin decreased
  15. SIDERAL [Concomitant]
     Indication: Serum ferritin decreased
  16. FOLIC ACID [Concomitant]
     Active Substance: FOLIC ACID
     Indication: Iron deficiency
     Dosage: 1 DOSAGE FORM, QD
     Route: 048
  17. FOLIC ACID [Concomitant]
     Active Substance: FOLIC ACID
     Indication: Haemoglobin decreased
  18. FOLIC ACID [Concomitant]
     Active Substance: FOLIC ACID
     Indication: Serum ferritin decreased
  19. UVIMAG B6 [Concomitant]
     Indication: Iron deficiency
     Dosage: 1 DOSAGE FORM, QD
     Route: 048
  20. UVIMAG B6 [Concomitant]
     Indication: Haemoglobin decreased
  21. UVIMAG B6 [Concomitant]
     Indication: Serum ferritin decreased
  22. COBALIN [Concomitant]
     Indication: Iron deficiency
     Dosage: 1 DOSAGE FORM (5000, 1 TABLET EVERY 10 DAYS)
     Route: 060
  23. COBALIN [Concomitant]
     Indication: Haemoglobin decreased
  24. COBALIN [Concomitant]
     Indication: Serum ferritin decreased
  25. VENOFER [Concomitant]
     Active Substance: IRON SUCROSE
     Indication: Iron deficiency
     Dosage: EVERY 3 DAYS
     Route: 042
  26. VENOFER [Concomitant]
     Active Substance: IRON SUCROSE
     Indication: Haemoglobin decreased
  27. VENOFER [Concomitant]
     Active Substance: IRON SUCROSE
     Indication: Serum ferritin decreased

REACTIONS (32)
  - Haematochezia [Not Recovered/Not Resolved]
  - Abdominal distension [Recovered/Resolved]
  - Renal pain [Recovered/Resolved]
  - Abdominal pain [Not Recovered/Not Resolved]
  - Dyspnoea [Recovered/Resolved]
  - Tachycardia [Recovered/Resolved]
  - Abdominal pain upper [Not Recovered/Not Resolved]
  - Large intestine polyp [Not Recovered/Not Resolved]
  - Constipation [Not Recovered/Not Resolved]
  - Erythema [Not Recovered/Not Resolved]
  - Loss of consciousness [Recovered/Resolved]
  - Loss of consciousness [Recovered/Resolved]
  - Loss of consciousness [Recovered/Resolved]
  - Crohn^s disease [Not Recovered/Not Resolved]
  - Interstitial lung disease [Unknown]
  - Renal impairment [Recovered/Resolved]
  - Pyrexia [Unknown]
  - Large intestinal haemorrhage [Unknown]
  - Diarrhoea [Recovered/Resolved]
  - Pus in stool [Not Recovered/Not Resolved]
  - Fatigue [Not Recovered/Not Resolved]
  - Cardiac disorder [Unknown]
  - Fatigue [Not Recovered/Not Resolved]
  - Palpitations [Unknown]
  - Mucous stools [Unknown]
  - Hypersensitivity [Unknown]
  - Vomiting [Unknown]
  - Nausea [Unknown]
  - Product availability issue [Not Recovered/Not Resolved]
  - Gastritis [Not Recovered/Not Resolved]
  - Gastric volvulus [Not Recovered/Not Resolved]
  - Abdominal distension [Not Recovered/Not Resolved]

NARRATIVE: CASE EVENT DATE: 20210201
